FAERS Safety Report 5473733-6 (Version None)
Quarter: 2007Q3

REPORT INFORMATION
  Report Type: 
  Country: None (occurrence: None)
  Receive Date: 20070831
  Receipt Date: 20070618
  Transmission Date: 20080115
  Serious: No
  Sender: FDA-Public Use
  Company Number: 243141

PATIENT
  Age: 82 Year
  Sex: Female

DRUGS (3)
  1. LUCENTIS [Suspect]
     Indication: MACULAR DEGENERATION
     Dates: start: 20070101
  2. FOSAMAX [Concomitant]
  3. DIURETIC NOS (DIURETIC NOS) [Concomitant]

REACTIONS (1)
  - VISION BLURRED [None]
